FAERS Safety Report 6086077-9 (Version None)
Quarter: 2009Q1

REPORT INFORMATION
  Report Type: 
  Country: None (occurrence: None)
  Receive Date: 20090220
  Receipt Date: 20090126
  Transmission Date: 20090719
  Serious: Yes (Other)
  Sender: FDA-Public Use
  Company Number: NO-PFIZER INC-2009159902

PATIENT

DRUGS (5)
  1. CARBAMAZEPINE [Suspect]
     Indication: EPILEPSY
  2. PHENYTOIN AND PHENYTOIN SODIUM [Suspect]
     Indication: EPILEPSY
  3. OXCARBAZEPINE [Suspect]
     Indication: EPILEPSY
  4. LAMOTRIGINE [Suspect]
     Indication: EPILEPSY
  5. PHENOBARBITAL [Concomitant]
     Indication: EPILEPSY

REACTIONS (4)
  - CROSS SENSITIVITY REACTION [None]
  - PYREXIA [None]
  - RASH [None]
  - STEVENS-JOHNSON SYNDROME [None]
